FAERS Safety Report 17764305 (Version 2)
Quarter: 2020Q2

REPORT INFORMATION
  Report Type: Spontaneous
  Country: US (occurrence: US)
  Receive Date: 20200511
  Receipt Date: 20200603
  Transmission Date: 20200714
  Serious: Yes (Death)
  Sender: FDA-Public Use
  Company Number: US-ROCHE-2597200

PATIENT
  Age: 70 Year
  Sex: Male
  Weight: 67.19 kg

DRUGS (1)
  1. ESBRIET [Suspect]
     Active Substance: PIRFENIDONE
     Indication: PULMONARY FIBROSIS
     Dosage: 3 CAPSULE THREE TIMES DAILY
     Route: 048
     Dates: end: 20200503

REACTIONS (3)
  - Hypoxia [Fatal]
  - Respiratory failure [Fatal]
  - Hypercapnia [Fatal]

NARRATIVE: CASE EVENT DATE: 20200503
